FAERS Safety Report 5782704-1 (Version None)
Quarter: 2008Q2

REPORT INFORMATION
  Report Type: 
  Country: None (occurrence: None)
  Receive Date: 20080624
  Receipt Date: 20080611
  Transmission Date: 20081010
  Serious: No
  Sender: FDA-Public Use
  Company Number: FR-ELI LILLY AND COMPANY-FR200806003241

PATIENT
  Age: 50 Year
  Sex: Female

DRUGS (4)
  1. ZYPREXA [Suspect]
     Indication: SCHIZOPHRENIA
     Route: 048
     Dates: start: 20021001
  2. TERCIAN [Concomitant]
     Dosage: 400 MG, DAILY (1/D)
     Route: 048
  3. CLONAZEPAM [Concomitant]
     Dosage: 2 MG, 4/D
     Route: 048
  4. DEPAKOTE [Concomitant]
     Dosage: 500 MG, 3/D

REACTIONS (1)
  - THROMBOCYTOPENIA [None]
